FAERS Safety Report 7225472-9 (Version None)
Quarter: 2011Q1

REPORT INFORMATION
  Report Type: 
  Country: None (occurrence: None)
  Receive Date: 20110113
  Receipt Date: 20100712
  Transmission Date: 20110831
  Serious: Yes (Hospitalization, Other)
  Sender: FDA-Public Use
  Company Number: US-BAYER-201016057NA

PATIENT
  Sex: Female
  Weight: 107.94 kg

DRUGS (2)
  1. YASMIN [Suspect]
     Indication: PRODUCT USED FOR UNKNOWN INDICATION
     Route: 048
  2. YAZ [Suspect]
     Indication: PRODUCT USED FOR UNKNOWN INDICATION
     Route: 048

REACTIONS (6)
  - HYPERTENSION [None]
  - DEEP VEIN THROMBOSIS [None]
  - DIALYSIS [None]
  - GLOMERULAR FILTRATION RATE DECREASED [None]
  - BLOOD PRESSURE INCREASED [None]
  - BLOOD CREATININE INCREASED [None]
